FAERS Safety Report 10132234 (Version 1)
Quarter: 2014Q2

REPORT INFORMATION
  Report Type: Spontaneous
  Country: FR (occurrence: FR)
  Receive Date: 20140428
  Receipt Date: 20140428
  Transmission Date: 20141212
  Serious: Yes (Other)
  Sender: FDA-Public Use
  Company Number: FR-TEVA-476200ISR

PATIENT
  Age: 72 Year
  Sex: Male

DRUGS (7)
  1. AZILECT [Suspect]
     Dosage: 1 MILLIGRAM DAILY;
     Route: 048
     Dates: start: 20140128, end: 201402
  2. AZILECT [Suspect]
     Dosage: 1 MILLIGRAM DAILY;
     Route: 048
     Dates: start: 20140302, end: 20140304
  3. MODOPAR [Concomitant]
     Dosage: 375 MILLIGRAM DAILY;
  4. MODOPAR LP [Concomitant]
     Dosage: 125 MILLIGRAM DAILY;
  5. COMTAN [Concomitant]
     Dosage: 600 MILLIGRAM DAILY;
  6. REMINYL LP [Concomitant]
     Dosage: 8 MILLIGRAM DAILY;
  7. GUTRON [Concomitant]
     Dates: start: 20140207

REACTIONS (2)
  - Chest discomfort [Recovered/Resolved]
  - Palpitations [Unknown]
